FAERS Safety Report 23098611 (Version 1)
Quarter: 2023Q4

REPORT INFORMATION
  Report Type: Spontaneous
  Country: US (occurrence: US)
  Receive Date: 20231023
  Receipt Date: 20231023
  Transmission Date: 20240109
  Serious: No
  Sender: FDA-Public Use
  Company Number: US-BAUSCHBL-2023BNL010077

PATIENT
  Sex: Female

DRUGS (1)
  1. MIEBO [Suspect]
     Active Substance: PERFLUOROHEXYLOCTANE
     Indication: Dry eye
     Dosage: 4 DROPS IN EACH EYE, USED MIEBO FOR THE FIRST ?TIME YESTERDAY (12/OCT/2023)
     Route: 047
     Dates: start: 20231012

REACTIONS (3)
  - Eye pain [Unknown]
  - Photosensitivity reaction [Unknown]
  - Lacrimation increased [Unknown]

NARRATIVE: CASE EVENT DATE: 20231012
